FAERS Safety Report 21193877 (Version 2)
Quarter: 2022Q3

REPORT INFORMATION
  Report Type: Spontaneous
  Country: US (occurrence: US)
  Receive Date: 20220810
  Receipt Date: 20220825
  Transmission Date: 20221026
  Serious: Yes (Hospitalization)
  Sender: FDA-Public Use
  Company Number: US-TEVA-2022-US-2062616

PATIENT
  Age: 71 Year
  Sex: Male

DRUGS (4)
  1. CAPECITABINE [Suspect]
     Active Substance: CAPECITABINE
     Indication: Adenocarcinoma gastric
     Route: 050
  2. NIVOLUMAB [Suspect]
     Active Substance: NIVOLUMAB
     Indication: Adenocarcinoma gastric
     Route: 050
  3. APIXABAN [Concomitant]
     Active Substance: APIXABAN
     Indication: Myocardial ischaemia
     Route: 050
  4. APIXABAN [Concomitant]
     Active Substance: APIXABAN
     Indication: Cardiac ventricular thrombosis

REACTIONS (1)
  - Enteritis [Recovering/Resolving]
